FAERS Safety Report 5871392-1 (Version None)
Quarter: 2008Q3

REPORT INFORMATION
  Report Type: 
  Country: None (occurrence: None)
  Receive Date: 20080904
  Receipt Date: 20080904
  Transmission Date: 20090109
  Serious: No
  Sender: FDA-Public Use
  Company Number: None

PATIENT

DRUGS (2)
  1. GABAPENTIN [Suspect]
     Indication: NEURALGIA
     Dosage: 300 MG CAPSULE 1 AT BEDTIME
     Dates: start: 20080817
  2. GABAPENTIN [Suspect]
     Indication: PAIN IN EXTREMITY
     Dosage: 300 MG CAPSULE 1 AT BEDTIME
     Dates: start: 20080817

REACTIONS (7)
  - FEAR [None]
  - FEELING ABNORMAL [None]
  - FOREIGN BODY TRAUMA [None]
  - HEADACHE [None]
  - HYPERSOMNIA [None]
  - MEMORY IMPAIRMENT [None]
  - THROAT IRRITATION [None]
